FAERS Safety Report 9116681 (Version 1)
Quarter: 2013Q1

REPORT INFORMATION
  Report Type: Spontaneous
  Country: JP (occurrence: JP)
  Receive Date: 20130225
  Receipt Date: 20130225
  Transmission Date: 20140127
  Serious: Yes (Other)
  Sender: FDA-Public Use
  Company Number: JP-ASTELLAS-2013JP002396

PATIENT
  Age: 85 Year
  Sex: Female

DRUGS (7)
  1. VESICARE [Suspect]
     Indication: HYPERTONIC BLADDER
     Dosage: 5 MG, UID/QD
     Route: 048
     Dates: start: 2010, end: 2010
  2. VESICARE [Suspect]
     Indication: HYPERTONIC BLADDER
     Dosage: 2.5 MG, UID/QD
     Route: 048
     Dates: start: 201208
  3. CELECOX [Concomitant]
     Dosage: 100 MG, UID/QD
     Route: 048
  4. MENESIT [Concomitant]
     Indication: PARKINSON^S DISEASE
     Dosage: 750 MG, UNKNOWN/D
     Route: 048
     Dates: start: 201010
  5. MENESIT [Concomitant]
     Dosage: 1100 MG, UNKNOWN/D
     Route: 048
  6. NAUZELIN [Concomitant]
     Dosage: 30 MG, UNKNOWN/D
     Route: 048
  7. NEXIUM                             /01479302/ [Concomitant]
     Dosage: 20 MG, UNKNOWN/D
     Route: 048

REACTIONS (1)
  - Parkinson^s disease [Unknown]
